FAERS Safety Report 6805191-0 (Version None)
Quarter: 2010Q2

REPORT INFORMATION
  Report Type: 
  Country: None (occurrence: None)
  Receive Date: 20100628
  Receipt Date: 20071024
  Transmission Date: 20101027
  Serious: No
  Sender: FDA-Public Use
  Company Number: US-PFIZER INC-2007070795

PATIENT
  Sex: Female

DRUGS (11)
  1. SOMAVERT [Suspect]
     Indication: ACROMEGALY
     Route: 058
     Dates: start: 20070515
  2. SOMAVERT [Suspect]
     Route: 058
     Dates: start: 20070701
  3. SYNTHROID [Concomitant]
  4. DIOVANE [Concomitant]
  5. ZOCOR [Concomitant]
  6. PREVACID [Concomitant]
  7. ACTOS [Concomitant]
  8. ACETYLSALICYLIC ACID [Concomitant]
  9. CALCIUM CARBONATE [Concomitant]
  10. VITAMIN D [Concomitant]
  11. FERROUS SULFATE TAB [Concomitant]

REACTIONS (4)
  - INCORRECT ROUTE OF DRUG ADMINISTRATION [None]
  - INJECTION SITE ERYTHEMA [None]
  - INJECTION SITE INDURATION [None]
  - INJECTION SITE PAIN [None]
